FAERS Safety Report 6842713-8 (Version None)
Quarter: 2010Q3

REPORT INFORMATION
  Report Type: 
  Country: None (occurrence: None)
  Receive Date: 20100714
  Receipt Date: 20070801
  Transmission Date: 20110219
  Serious: No
  Sender: FDA-Public Use
  Company Number: US-PFIZER INC-2007065334

PATIENT
  Sex: Male
  Weight: 118.8 kg

DRUGS (5)
  1. CHANTIX [Suspect]
     Indication: SMOKING CESSATION THERAPY
     Route: 048
     Dates: start: 20070728
  2. ZOCOR [Concomitant]
  3. CLONIDINE [Concomitant]
  4. LOPRESSOR [Concomitant]
  5. DIPYRIDAMOLE [Concomitant]

REACTIONS (2)
  - DIZZINESS [None]
  - NAUSEA [None]
